FAERS Safety Report 8560252-3 (Version None)
Quarter: 2012Q3

REPORT INFORMATION
  Report Type: 
  Country: None (occurrence: None)
  Receive Date: 20120802
  Receipt Date: 20120727
  Transmission Date: 20120928
  Serious: Yes (Other)
  Sender: FDA-Public Use
  Company Number: US-ROCHE-1081092

PATIENT
  Sex: Male
  Weight: 83.99 kg

DRUGS (4)
  1. VECTIBIX [Concomitant]
  2. PANTOPRAZOLE [Concomitant]
  3. AVASTIN [Suspect]
     Indication: COLORECTAL CANCER
     Route: 042
     Dates: start: 20120130, end: 20120718
  4. ZOFRAN [Concomitant]

REACTIONS (2)
  - BRAIN NEOPLASM [None]
  - NEOPLASM PROGRESSION [None]
